FAERS Safety Report 15293726 (Version 1)
Quarter: 2018Q3

REPORT INFORMATION
  Report Type: Spontaneous
  Country: US (occurrence: US)
  Receive Date: 20180807
  Receipt Date: 20180807
  Transmission Date: 20181010
  Serious: No
  Sender: FDA-Public Use
  Company Number: None

PATIENT
  Age: 41 Year
  Sex: Male
  Weight: 87.75 kg

DRUGS (3)
  1. BYSTOLIC [Concomitant]
     Active Substance: NEBIVOLOL HYDROCHLORIDE
  2. MEN^S MULTIVITAMIN GUMMY [Concomitant]
  3. LAMOTRIGINE. [Suspect]
     Active Substance: LAMOTRIGINE
     Indication: PARTIAL SEIZURES
     Dosage: ?          QUANTITY:1 TABLET(S);?
     Route: 048

REACTIONS (10)
  - Influenza like illness [None]
  - Product substitution issue [None]
  - Lip dry [None]
  - Headache [None]
  - Hypoaesthesia oral [None]
  - Fatigue [None]
  - Tension headache [None]
  - Dizziness [None]
  - Vision blurred [None]
  - Decreased appetite [None]

NARRATIVE: CASE EVENT DATE: 20180716
